FAERS Safety Report 7071519-2 (Version None)
Quarter: 2010Q4

REPORT INFORMATION
  Report Type: 
  Country: None (occurrence: None)
  Receive Date: 20101029
  Receipt Date: 20090916
  Transmission Date: 20110411
  Serious: No
  Sender: FDA-Public Use
  Company Number: A0807669A

PATIENT
  Age: 55 Year
  Sex: Female

DRUGS (8)
  1. ADVAIR DISKUS 100/50 [Suspect]
     Indication: ASTHMA
     Route: 055
     Dates: start: 20090301, end: 20090901
  2. SINGULAIR [Concomitant]
  3. FEXOFENADINE HCL [Concomitant]
  4. AVAPRO [Concomitant]
  5. TOPROL-XL [Concomitant]
  6. TOPAMAX [Concomitant]
  7. PREVACID [Concomitant]
  8. PROAIR HFA [Concomitant]

REACTIONS (4)
  - DYSPHONIA [None]
  - DYSPNOEA [None]
  - EAR INFECTION [None]
  - SINUSITIS [None]
